FAERS Safety Report 12224759 (Version 1)
Quarter: 2016Q1

REPORT INFORMATION
  Report Type: Spontaneous
  Country: FR (occurrence: FR)
  Receive Date: 20160331
  Receipt Date: 20160331
  Transmission Date: 20160526
  Serious: Yes (Other)
  Sender: FDA-Public Use
  Company Number: FR-ACCORD-039232

PATIENT
  Age: 50 Year
  Sex: Female

DRUGS (11)
  1. FLUOROURACIL ACCORD [Suspect]
     Active Substance: FLUOROURACIL
     Indication: ADENOCARCINOMA GASTRIC
     Dosage: TFOX, 2400 MG/M^2??FLUOROURACIL ACCORD 5 G/100 ML
     Route: 042
     Dates: start: 20150824, end: 20151214
  2. INEXIUM [Concomitant]
     Active Substance: ESOMEPRAZOLE
     Route: 048
  3. EFFERALGAN [Concomitant]
     Active Substance: ACETAMINOPHEN
     Route: 048
  4. DUROGESIC [Concomitant]
     Active Substance: FENTANYL
     Dosage: 12 + 25 ?G PER HOUR SKIN 1 VERY 3 DAYS
     Route: 003
  5. ONDANSETRON [Suspect]
     Active Substance: ONDANSETRON
     Indication: PREMEDICATION
     Route: 042
     Dates: start: 20150824, end: 20151214
  6. METHYLPREDNISOLONE. [Suspect]
     Active Substance: METHYLPREDNISOLONE
     Indication: PREMEDICATION
     Route: 042
     Dates: start: 20150824, end: 20151214
  7. DOCETAXEL ACCORD [Suspect]
     Active Substance: DOCETAXEL
     Indication: ADENOCARCINOMA GASTRIC
     Dosage: 50 MG/M^2??DOCETAXEL ACCORD (80 MG/4 ML AND 160 MG/8 ML)
     Route: 042
     Dates: start: 20150824, end: 20151214
  8. OXALIPLATIN TEVA [Suspect]
     Active Substance: OXALIPLATIN
     Indication: ADENOCARCINOMA GASTRIC
     Dosage: TFOX, 85 MG/M^2??OXALIPLATIN TEVA 100 MG/20 ML, 200 MG/40 ML
     Route: 042
     Dates: start: 20150824, end: 20151112
  9. ELVORINE [Suspect]
     Active Substance: LEUCOVORIN CALCIUM
     Indication: ADENOCARCINOMA GASTRIC
     Dosage: TFOX, 175 MG/17.5 ML
     Dates: start: 20150824, end: 20151214
  10. CALCIUM LEVOFOLINATE SANOFI [Suspect]
     Active Substance: LEVOLEUCOVORIN CALCIUM
     Indication: ADENOCARCINOMA GASTRIC
     Dosage: TFOX, 175 MG/17.5 ML
     Route: 042
     Dates: start: 20150824, end: 20151214
  11. INSTANYL [Concomitant]
     Active Substance: FENTANYL
     Dosage: 100 ?G MAXIMUM 6 TO 12 DAILY
     Route: 045

REACTIONS (3)
  - Neuropathy peripheral [Not Recovered/Not Resolved]
  - Balance disorder [Unknown]
  - Hypoaesthesia oral [Unknown]

NARRATIVE: CASE EVENT DATE: 20151130
